FAERS Safety Report 20160755 (Version 2)
Quarter: 2022Q1

REPORT INFORMATION
  Report Type: Report from Study
  Country: CA (occurrence: CA)
  Receive Date: 20211208
  Receipt Date: 20220203
  Transmission Date: 20220424
  Serious: Yes (Other)
  Sender: FDA-Public Use
  Company Number: CA-AstraZeneca-2021A831914

PATIENT
  Sex: Female

DRUGS (2)
  1. TRASTUZUMAB DERUXTECAN [Suspect]
     Active Substance: TRASTUZUMAB DERUXTECAN
     Indication: Breast cancer
     Dosage: 341 MG, ONCE EVERY 3 WK
     Route: 065
     Dates: start: 20211029
  2. TRASTUZUMAB DERUXTECAN [Suspect]
     Active Substance: TRASTUZUMAB DERUXTECAN
     Dosage: REDUCED
     Route: 065

REACTIONS (4)
  - Weight increased [Unknown]
  - Ascites [Unknown]
  - Jaundice [Unknown]
  - Heart rate increased [Unknown]
